FAERS Safety Report 7118079-5 (Version None)
Quarter: 2010Q4

REPORT INFORMATION
  Report Type: 
  Country: None (occurrence: None)
  Receive Date: 20101123
  Receipt Date: 20100301
  Transmission Date: 20110411
  Serious: No
  Sender: FDA-Public Use
  Company Number: US-MYLANLABS-2009S1020502

PATIENT
  Age: 64 Year
  Sex: Male
  Weight: 77.11 kg

DRUGS (2)
  1. ALLOPURINOL TAB [Suspect]
     Indication: GOUT
     Route: 048
     Dates: start: 20090429, end: 20090917
  2. LOVASTATIN [Concomitant]
     Indication: BLOOD CHOLESTEROL INCREASED
     Dates: start: 20020101

REACTIONS (2)
  - DRUG INEFFECTIVE [None]
  - PAIN [None]
